FAERS Safety Report 17692871 (Version 1)
Quarter: 2020Q2

REPORT INFORMATION
  Report Type: Spontaneous
  Country: CN (occurrence: CN)
  Receive Date: 20200422
  Receipt Date: 20200422
  Transmission Date: 20200714
  Serious: Yes (Other)
  Sender: FDA-Public Use
  Company Number: CN-ROCHE-2582178

PATIENT
  Age: 31 Year
  Sex: Female

DRUGS (31)
  1. XELODA [Suspect]
     Active Substance: CAPECITABINE
     Indication: METASTASES TO OVARY
     Dosage: 3 CYCLES
     Route: 048
     Dates: start: 20180919, end: 20181101
  2. XELODA [Suspect]
     Active Substance: CAPECITABINE
     Indication: ADENOCARCINOMA OF COLON
     Dosage: 1.5 UNIT NOT REPORTED?DAY1-14, EVERY 3 WEEKS AS 1 CYCLE
     Route: 048
     Dates: start: 201901, end: 201906
  3. LOBAPLATIN [Concomitant]
     Active Substance: LOBAPLATIN
     Indication: ADENOCARCINOMA OF COLON
  4. FRUQUINTINIB. [Concomitant]
     Active Substance: FRUQUINTINIB
     Indication: ADENOCARCINOMA OF COLON
     Route: 065
     Dates: start: 20200304
  5. SINTILIMAB. [Concomitant]
     Active Substance: SINTILIMAB
     Indication: METASTASES TO OVARY
     Route: 065
     Dates: start: 20200304
  6. XELODA [Suspect]
     Active Substance: CAPECITABINE
     Indication: ADENOCARCINOMA OF COLON
     Dosage: 8 CYCLES XELOX REGIMEN
     Route: 048
     Dates: start: 20180403, end: 20180828
  7. FLUOROURACIL. [Concomitant]
     Active Substance: FLUOROURACIL
     Indication: RECTAL ADENOCARCINOMA
     Dosage: FOLFIRI REGIMEN
     Route: 065
     Dates: start: 20181128
  8. SINTILIMAB. [Concomitant]
     Active Substance: SINTILIMAB
     Indication: RECTAL ADENOCARCINOMA
     Route: 065
     Dates: start: 20200212
  9. SINTILIMAB. [Concomitant]
     Active Substance: SINTILIMAB
     Indication: ADENOCARCINOMA OF COLON
     Route: 065
     Dates: start: 20200326
  10. AVASTIN [Suspect]
     Active Substance: BEVACIZUMAB
     Indication: METASTASES TO OVARY
     Dosage: 3 CYCLES
     Route: 065
     Dates: start: 20180919, end: 20181101
  11. OXALIPLATIN. [Concomitant]
     Active Substance: OXALIPLATIN
     Indication: RECTAL ADENOCARCINOMA
     Dosage: 8 CYCLES XELOX REGIMEN
     Route: 065
     Dates: start: 20180403, end: 20180828
  12. FLUOROURACIL. [Concomitant]
     Active Substance: FLUOROURACIL
     Dosage: FOLFOXIRI REGIMEN
     Route: 065
     Dates: start: 20190724
  13. CALCIUM FOLINATE [Concomitant]
     Active Substance: LEUCOVORIN CALCIUM
     Indication: METASTASES TO OVARY
     Dosage: FOLFIRI REGIMEN
     Route: 065
     Dates: start: 20181216
  14. FRUQUINTINIB. [Concomitant]
     Active Substance: FRUQUINTINIB
     Route: 065
     Dates: start: 20200326
  15. OXALIPLATIN. [Concomitant]
     Active Substance: OXALIPLATIN
     Indication: ADENOCARCINOMA OF COLON
     Dosage: FOLFOXIRI REGIMEN
     Route: 065
     Dates: start: 20190724
  16. LOBAPLATIN [Concomitant]
     Active Substance: LOBAPLATIN
     Indication: RECTAL ADENOCARCINOMA
     Dosage: FOLFIRI REGIMEN
     Route: 065
     Dates: start: 20181128
  17. LOBAPLATIN [Concomitant]
     Active Substance: LOBAPLATIN
     Indication: METASTASES TO OVARY
     Dosage: FOLFIRI REGIMEN
     Route: 065
     Dates: start: 20181216
  18. AVASTIN [Suspect]
     Active Substance: BEVACIZUMAB
     Indication: RECTAL ADENOCARCINOMA
     Dosage: 8 CYCLES
     Route: 065
     Dates: start: 20180403, end: 20180828
  19. FLUOROURACIL. [Concomitant]
     Active Substance: FLUOROURACIL
     Indication: ADENOCARCINOMA OF COLON
     Dosage: FOLFOXIRI REGIMEN
     Route: 065
     Dates: start: 20190705
  20. CALCIUM FOLINATE [Concomitant]
     Active Substance: LEUCOVORIN CALCIUM
     Indication: ADENOCARCINOMA OF COLON
     Dosage: FOLFOXIRI REGIMEN
     Route: 065
     Dates: start: 20190705
  21. IRINOTECAN [Concomitant]
     Active Substance: IRINOTECAN
     Indication: ADENOCARCINOMA OF COLON
     Dosage: FOLFOXIRI REGIMEN
     Route: 065
     Dates: start: 20190705
  22. IRINOTECAN [Concomitant]
     Active Substance: IRINOTECAN
     Dosage: FOLFOXIRI REGIMEN
     Route: 065
     Dates: start: 20190724
  23. FLUOROURACIL. [Concomitant]
     Active Substance: FLUOROURACIL
     Indication: METASTASES TO OVARY
     Dosage: FOLFIRI REGIMEN
     Route: 065
     Dates: start: 20181216
  24. OXALIPLATIN. [Concomitant]
     Active Substance: OXALIPLATIN
     Indication: METASTASES TO OVARY
     Dosage: FOLFOXIRI REGIMEN
     Route: 065
     Dates: start: 20190705
  25. CALCIUM FOLINATE [Concomitant]
     Active Substance: LEUCOVORIN CALCIUM
     Indication: RECTAL ADENOCARCINOMA
     Dosage: FOLFIRI REGIMEN
     Route: 065
     Dates: start: 20181128
  26. IRINOTECAN [Concomitant]
     Active Substance: IRINOTECAN
     Indication: RECTAL ADENOCARCINOMA
     Dosage: FOLFIRI REGIMEN
     Route: 065
     Dates: start: 20181128
  27. FRUQUINTINIB. [Concomitant]
     Active Substance: FRUQUINTINIB
     Indication: RECTAL ADENOCARCINOMA
     Dosage: DAY 1-21, EVERY 4 WEEKS AS ONE CYCLE
     Route: 065
     Dates: start: 20190808
  28. AVASTIN [Suspect]
     Active Substance: BEVACIZUMAB
     Indication: ADENOCARCINOMA OF COLON
     Route: 065
     Dates: start: 20190705, end: 20190724
  29. CALCIUM FOLINATE [Concomitant]
     Active Substance: LEUCOVORIN CALCIUM
     Dosage: FOLFOXIRI REGIMEN
     Route: 065
     Dates: start: 20190724
  30. IRINOTECAN [Concomitant]
     Active Substance: IRINOTECAN
     Indication: METASTASES TO OVARY
     Dosage: FOLFIRI REGIMEN
     Route: 065
     Dates: start: 20181216
  31. FRUQUINTINIB. [Concomitant]
     Active Substance: FRUQUINTINIB
     Indication: METASTASES TO OVARY
     Route: 065
     Dates: start: 20200212

REACTIONS (3)
  - Bone marrow failure [Unknown]
  - Asthenia [Unknown]
  - Gastrointestinal disorder [Unknown]
